FAERS Safety Report 23153458 (Version 1)
Quarter: 2023Q4

REPORT INFORMATION
  Report Type: Spontaneous
  Country: US (occurrence: US)
  Receive Date: 20231107
  Receipt Date: 20231107
  Transmission Date: 20240109
  Serious: Yes (Other)
  Sender: FDA-Public Use
  Company Number: US-BECTON DICKINSON-US-BD-23-000385

PATIENT
  Age: 54 Year
  Sex: Female

DRUGS (1)
  1. CHLORHEXIDINE GLUCONATE\ISOPROPYL ALCOHOL [Suspect]
     Active Substance: CHLORHEXIDINE GLUCONATE\ISOPROPYL ALCOHOL
     Indication: Infection prophylaxis
     Dosage: UNK
     Route: 047

REACTIONS (5)
  - Ulcerative keratitis [Unknown]
  - Eye pain [Unknown]
  - Ocular discomfort [Unknown]
  - Accidental exposure to product [Unknown]
  - Off label use [Unknown]
